FAERS Safety Report 12356103 (Version 1)
Quarter: 2016Q2

REPORT INFORMATION
  Report Type: Other
  Country: GB (occurrence: GB)
  Receive Date: 20160511
  Receipt Date: 20160511
  Transmission Date: 20160815
  Serious: Yes (Hospitalization)
  Sender: FDA-Public Use
  Company Number: GB-MYLANLABS-2016M1018526

PATIENT

DRUGS (12)
  1. COCODAMOL [Concomitant]
     Active Substance: ACETAMINOPHEN\CODEINE PHOSPHATE
     Dosage: UNK (30/500 1-2 FOUR TIMES A DAY WHEN REQUIRED) AS NECESSARY
  2. FENOFIBRATE. [Suspect]
     Active Substance: FENOFIBRATE
     Dosage: 160 MG, QD (AT NIGHT)
  3. AMITRIPTYLINE [Concomitant]
     Active Substance: AMITRIPTYLINE
     Dosage: UNK (1-2 AT NIGHT)
  4. METFORMIN [Concomitant]
     Active Substance: METFORMIN HYDROCHLORIDE
     Dosage: 500 MG, BID
  5. CARVEDILOL. [Concomitant]
     Active Substance: CARVEDILOL
     Dosage: 6.25 MG, BID
  6. FUROSEMIDE. [Concomitant]
     Active Substance: FUROSEMIDE
     Dosage: 40 MG, QD (MORNING)
  7. LANTUS [Concomitant]
     Active Substance: INSULIN GLARGINE
     Dosage: 88 IU, QD (AT NIGHT)
  8. NOVORAPID [Concomitant]
     Active Substance: INSULIN ASPART
     Dosage: UNK (32 UNITS AT BREAKFAST + LUNCH 38UNITS WITH DINNER)
  9. CLARITHROMYCIN. [Suspect]
     Active Substance: CLARITHROMYCIN
     Indication: CELLULITIS
     Dosage: 500 MG, BID
     Route: 048
     Dates: start: 20160406, end: 20160408
  10. RUXOLITINIB [Suspect]
     Active Substance: RUXOLITINIB
     Dosage: 5 MG, BID
  11. FOLIC ACID. [Concomitant]
     Active Substance: FOLIC ACID
     Dosage: 5 MG, QD (MORNING)
  12. ALLOPURINOL. [Concomitant]
     Active Substance: ALLOPURINOL
     Dosage: 300 MG, QD

REACTIONS (2)
  - Labelled drug-drug interaction medication error [Unknown]
  - Feeling abnormal [Recovering/Resolving]

NARRATIVE: CASE EVENT DATE: 20160406
